FAERS Safety Report 10152691 (Version 1)
Quarter: 2014Q2

REPORT INFORMATION
  Report Type: Spontaneous
  Country: PT (occurrence: PT)
  Receive Date: 20140505
  Receipt Date: 20140505
  Transmission Date: 20141212
  Serious: Yes (Other)
  Sender: FDA-Public Use
  Company Number: PT-ACTAVIS-2014-08833

PATIENT
  Age: 41 Year
  Sex: Female
  Weight: 60 kg

DRUGS (1)
  1. DOCETAXEL ACTAVIS [Suspect]
     Indication: BREAST CANCER
     Dosage: 100 MG/M2, UNK; EVERY 21 DAYS
     Route: 042
     Dates: start: 20140404, end: 20140404

REACTIONS (3)
  - Anaphylactic reaction [Recovered/Resolved]
  - Flushing [Recovered/Resolved]
  - Back pain [Recovered/Resolved]
